FAERS Safety Report 12836623 (Version 1)
Quarter: 2016Q4

REPORT INFORMATION
  Report Type: Spontaneous
  Country: JP (occurrence: JP)
  Receive Date: 20161011
  Receipt Date: 20161011
  Transmission Date: 20170207
  Serious: Yes (Hospitalization, Other)
  Sender: FDA-Public Use
  Company Number: JP-ELI_LILLY_AND_COMPANY-JP201608006946

PATIENT
  Age: 68 Year
  Sex: Female
  Weight: 64 kg

DRUGS (12)
  1. LUNESTA [Concomitant]
     Active Substance: ESZOPICLONE
     Indication: ANXIETY DISORDER
     Dosage: 2 MG, QD
     Route: 048
  2. RELVAR [Concomitant]
     Active Substance: FLUTICASONE FUROATE\VILANTEROL TRIFENATATE
     Indication: ASTHMA
     Dosage: UNK UNK, PRN
     Route: 055
  3. EBASTINE [Concomitant]
     Active Substance: EBASTINE
     Indication: ASTHMA
     Dosage: 10 MG, QD
     Route: 048
  4. FLUITRAN [Suspect]
     Active Substance: TRICHLORMETHIAZIDE
     Indication: CARDIAC FAILURE CHRONIC
     Dosage: 2 MG, QD
     Route: 048
     Dates: end: 20160803
  5. SYMBICORT [Concomitant]
     Active Substance: BUDESONIDE\FORMOTEROL FUMARATE DIHYDRATE
     Indication: ASTHMA
     Dosage: UNK UNK, PRN
     Route: 055
  6. CYMBALTA [Suspect]
     Active Substance: DULOXETINE HYDROCHLORIDE
     Indication: ANXIETY DISORDER
     Dosage: 60 MG, QD
     Route: 048
     Dates: start: 20130620, end: 20160803
  7. VALSARTAN. [Concomitant]
     Active Substance: VALSARTAN
     Indication: HYPERTENSION
     Dosage: 160 MG, BID
     Route: 048
  8. LASIX [Suspect]
     Active Substance: FUROSEMIDE
     Indication: CARDIAC FAILURE CHRONIC
     Dosage: UNK
     Route: 048
  9. LASIX [Suspect]
     Active Substance: FUROSEMIDE
     Dosage: UNK
     Dates: end: 20160719
  10. LASIX [Suspect]
     Active Substance: FUROSEMIDE
     Dosage: 20 MG, QD
     Route: 048
     Dates: start: 20160720, end: 20160803
  11. AMLODIPINE                         /00972402/ [Concomitant]
     Active Substance: AMLODIPINE BESYLATE
     Indication: HYPERTENSION
     Dosage: 10 MG, QD
     Route: 048
  12. WARFARIN                           /00014803/ [Concomitant]
     Active Substance: WARFARIN
     Indication: ATRIAL FIBRILLATION
     Dosage: 4 MG, QD
     Route: 048

REACTIONS (6)
  - Cardiac failure chronic [Not Recovered/Not Resolved]
  - Hiatus hernia [Not Recovered/Not Resolved]
  - Hypokalaemia [Recovered/Resolved]
  - Hyponatraemia [Recovered/Resolved]
  - Off label use [Not Recovered/Not Resolved]
  - Gastrooesophageal reflux disease [Not Recovered/Not Resolved]

NARRATIVE: CASE EVENT DATE: 20130620
